FAERS Safety Report 5441825-3 (Version None)
Quarter: 2007Q3

REPORT INFORMATION
  Report Type: 
  Country: None (occurrence: None)
  Receive Date: 20070830
  Receipt Date: 20070830
  Transmission Date: 20080115
  Serious: Yes (Hospitalization)
  Sender: FDA-Public Use
  Company Number: None

PATIENT
  Age: 65 Year
  Sex: Female
  Weight: 84.7 kg

DRUGS (3)
  1. DITROPAN [Suspect]
     Dosage: 15 MG THREE TIMES DAILY PO
     Route: 048
  2. REQUIP [Concomitant]
  3. HYCODAN [Concomitant]

REACTIONS (4)
  - DEPRESSION [None]
  - DIPLOPIA [None]
  - IMPAIRED DRIVING ABILITY [None]
  - UROSEPSIS [None]
